FAERS Safety Report 7954540 (Version 4)
Quarter: 2013Q1

REPORT INFORMATION
  Report Type: Report from Study
  Country: JP (occurrence: JP)
  Receive Date: 20110520
  Receipt Date: 20130219
  Transmission Date: 20140127
  Serious: Yes (Hospitalization)
  Sender: FDA-Public Use
  Company Number: JP-ABBOTT-11P-087-0726924-00

PATIENT
  Age: 59 Year
  Sex: Male

DRUGS (18)
  1. HUMIRA 40 MG/ 0.8 ML PRE-FILLED SYRINGE [Suspect]
     Indication: RHEUMATOID ARTHRITIS
     Route: 058
     Dates: start: 20090615
  2. PREDNISOLONE [Suspect]
     Indication: RHEUMATOID ARTHRITIS
     Route: 048
     Dates: start: 20091126, end: 20091207
  3. PREDNISOLONE [Suspect]
     Dates: start: 20091208, end: 20100104
  4. PREDNISOLONE [Suspect]
     Dates: start: 20100105, end: 20100315
  5. PREDNISOLONE [Suspect]
     Dates: start: 20100316, end: 20100412
  6. PREDNISOLONE [Suspect]
     Dates: start: 20100413, end: 20100704
  7. PREDNISOLONE [Suspect]
     Dates: start: 20100705
  8. METHOTREXATE [Concomitant]
     Indication: RHEUMATOID ARTHRITIS
     Route: 048
  9. OMEPRAZOLE [Concomitant]
     Indication: PROPHYLAXIS
  10. FEXOFENADINE HYDROCHLORIDE [Concomitant]
     Indication: PRODUCT USED FOR UNKNOWN INDICATION
     Dates: end: 20100201
  11. CLARITHROMYCIN [Concomitant]
     Indication: PRODUCT USED FOR UNKNOWN INDICATION
  12. FOLIC ACID [Concomitant]
     Indication: PROPHYLAXIS
  13. VALSARTAN [Concomitant]
     Indication: PRODUCT USED FOR UNKNOWN INDICATION
     Dates: end: 20101107
  14. AMLODIPINE BESILATE [Concomitant]
     Indication: PRODUCT USED FOR UNKNOWN INDICATION
     Dates: end: 20121219
  15. LOXOPROFEN SODIUM HYDRATE [Concomitant]
     Indication: RHEUMATOID ARTHRITIS
     Dates: end: 20100315
  16. OLOPATADINE HYDROCHLORIDE [Concomitant]
     Indication: PRODUCT USED FOR UNKNOWN INDICATION
     Dates: start: 20100202
  17. CLOPIDOGREL SULFATE [Concomitant]
     Indication: PROPHYLAXIS
     Dates: start: 20100323, end: 20101107
  18. ASPIRIN [Concomitant]
     Indication: PROPHYLAXIS
     Dates: start: 20100323

REACTIONS (1)
  - Myocardial infarction [Recovered/Resolved]
